FAERS Safety Report 8610284-1 (Version None)
Quarter: 2012Q3

REPORT INFORMATION
  Report Type: 
  Country: None (occurrence: None)
  Receive Date: 20120810
  Receipt Date: 20120810
  Transmission Date: 20120928
  Serious: Yes (Life-Threatening, Hospitalization)
  Sender: FDA-Public Use
  Company Number: None

PATIENT
  Age: 58 Year
  Sex: Male
  Weight: 87.8 kg

DRUGS (76)
  1. INLYTA [Suspect]
     Indication: RENAL CANCER METASTATIC
     Dosage: 5 MG, BID, PO
     Route: 048
  2. TYLENOL [Concomitant]
  3. PHOSLO [Concomitant]
  4. CALCIUM GLUCONATE [Concomitant]
  5. ROCALTROL [Concomitant]
  6. CONSULT [Concomitant]
  7. DEXTROSE [Concomitant]
  8. LOVENOX [Concomitant]
  9. LASIX [Concomitant]
  10. ANUSOL HC [Concomitant]
  11. NOVOLIN R [Concomitant]
  12. IMDUR [Concomitant]
  13. TORADOL [Concomitant]
  14. ANCEF [Concomitant]
  15. HEPARIN SODIUM [Concomitant]
  16. XYLOCAINE [Concomitant]
  17. TENORMIN [Concomitant]
  18. PERLE [Concomitant]
  19. DULCOLAX [Concomitant]
  20. NIMBEX [Concomitant]
  21. NEXIUM [Concomitant]
  22. GLUCAGON [Concomitant]
  23. APRESOLINE [Concomitant]
  24. NOVOLOG [Concomitant]
  25. VENOFER [Concomitant]
  26. CLARITIN [Concomitant]
  27. ATIVAN [Concomitant]
  28. ALBUMINAR-25 [Concomitant]
  29. BUMEX [Concomitant]
  30. CALCIUM CARBONATE [Concomitant]
  31. DDAVP [Concomitant]
  32. BENTYL [Concomitant]
  33. CARDIZEM SR [Concomitant]
  34. FEOSOL [Concomitant]
  35. ROBINUL [Concomitant]
  36. SOLU-CORTEF [Concomitant]
  37. DUO-TRACH [Concomitant]
  38. LIPITOR [Concomitant]
  39. EMPTY PVC [Concomitant]
  40. MAXIPIME [Concomitant]
  41. SANTYL [Concomitant]
  42. DEXTROSE WITH SODIUIM [Concomitant]
  43. GOLUTELY [Concomitant]
  44. HUMIBID LA [Concomitant]
  45. POTASSIUM CHLORIDE [Concomitant]
  46. BACID [Concomitant]
  47. XYLOCAINE VISCOUS [Concomitant]
  48. PROVENTIL [Concomitant]
  49. ASPIRIN [Concomitant]
  50. STERILE TESSALON [Concomitant]
  51. PHARMACY NASALCROM SPRAY [Concomitant]
  52. CARDIZEM CD [Concomitant]
  53. SUBLIMAZE PRESERVATIVE FREE [Concomitant]
  54. LEVEMIR [Concomitant]
  55. LEVAQUIN [Concomitant]
  56. IMODIUM A-D [Concomitant]
  57. MILK OF MAGNESIA TAB [Concomitant]
  58. ZYLOPRIM [Concomitant]
  59. ALTERNAJEL [Concomitant]
  60. QUESTRAN [Concomitant]
  61. XGEVA [Concomitant]
  62. ADRENALIN ILOTYCIN [Concomitant]
  63. GLUCOSE [Concomitant]
  64. SYNTHROID [Concomitant]
  65. SLOW-MAG [Concomitant]
  66. CATHFLO ACTIVASE [Concomitant]
  67. NORVASC [Concomitant]
  68. CALCIUM CARBONATE [Concomitant]
  69. CEPACOL [Concomitant]
  70. ARANESP [Concomitant]
  71. BENADRYL [Concomitant]
  72. PEPCID [Concomitant]
  73. FOLVITE [Concomitant]
  74. ATROVENT [Concomitant]
  75. MYLANTA [Concomitant]
  76. MAGNESIUM SULFATE [Concomitant]

REACTIONS (7)
  - ASTHENIA [None]
  - RETROPERITONEAL ABSCESS [None]
  - LARGE INTESTINE PERFORATION [None]
  - FATIGUE [None]
  - URINE OUTPUT DECREASED [None]
  - ENTEROCOLONIC FISTULA [None]
  - DIARRHOEA [None]
